FAERS Safety Report 11753022 (Version 1)
Quarter: 2015Q4

REPORT INFORMATION
  Report Type: Spontaneous
  Country: US (occurrence: US)
  Receive Date: 20151119
  Receipt Date: 20151119
  Transmission Date: 20160304
  Serious: Yes (Other)
  Sender: FDA-Public Use
  Company Number: US-NOVEN PHARMACEUTICALS, INC.-US2015001120

PATIENT
  Age: 53 Year
  Sex: Female

DRUGS (3)
  1. MINIVELLE [Suspect]
     Active Substance: ESTRADIOL
     Indication: HOT FLUSH
     Dosage: UNK, UNKNOWN
     Route: 062
     Dates: start: 2013, end: 201508
  2. MINIVELLE [Suspect]
     Active Substance: ESTRADIOL
     Indication: NIGHT SWEATS
  3. ADVIL [Concomitant]
     Active Substance: IBUPROFEN
     Dosage: UNK, PRN

REACTIONS (8)
  - Hyperhidrosis [Unknown]
  - Cyst [Recovering/Resolving]
  - Impaired healing [Recovering/Resolving]
  - Blindness transient [Recovered/Resolved]
  - Amnesia [Recovering/Resolving]
  - Dizziness [Recovered/Resolved]
  - Feeling abnormal [Recovered/Resolved]
  - Therapy cessation [Not Recovered/Not Resolved]

NARRATIVE: CASE EVENT DATE: 201508
